FAERS Safety Report 12642963 (Version 1)
Quarter: 2016Q3

REPORT INFORMATION
  Report Type: Spontaneous
  Country: RU (occurrence: RU)
  Receive Date: 20160811
  Receipt Date: 20160811
  Transmission Date: 20161109
  Serious: Yes (Hospitalization)
  Sender: FDA-Public Use
  Company Number: RU-ASTRAZENECA-2016SE85552

PATIENT
  Age: 66 Year
  Sex: Male
  Weight: 66 kg

DRUGS (5)
  1. CARDIOMAGNYL [Concomitant]
     Active Substance: ASPIRIN\MAGNESIUM HYDROXIDE
  2. BRILINTA [Suspect]
     Active Substance: TICAGRELOR
     Indication: STENT PLACEMENT
     Route: 048
     Dates: start: 201604
  3. STATIN [Concomitant]
     Active Substance: UNSPECIFIED INGREDIENT
  4. ZOCARDIS [Concomitant]
  5. OMEZ [Concomitant]
     Active Substance: OMEPRAZOLE

REACTIONS (4)
  - Dyspnoea [Unknown]
  - Bradycardia [Not Recovered/Not Resolved]
  - Hypotension [Not Recovered/Not Resolved]
  - Vascular occlusion [Unknown]

NARRATIVE: CASE EVENT DATE: 20160411
